FAERS Safety Report 21045230 (Version 1)
Quarter: 2022Q3

REPORT INFORMATION
  Report Type: Spontaneous
  Country: GB (occurrence: GB)
  Receive Date: 20220705
  Receipt Date: 20220705
  Transmission Date: 20221027
  Serious: Yes (Death, Hospitalization, Other)
  Sender: FDA-Public Use
  Company Number: GB-CELGENE-GBR-20220102015

PATIENT
  Age: 74 Year
  Sex: Female
  Weight: 91.2 kg

DRUGS (8)
  1. AZACITIDINE [Suspect]
     Active Substance: AZACITIDINE
     Indication: Myelodysplastic syndrome
     Dosage: FREQUENCY TEXT: FOR 7 DAYS OUT OF THE FIRST 9 DAYS OF EACH CYCLE
     Route: 042
     Dates: start: 20211102, end: 20220105
  2. ACYCLOVIR [Concomitant]
     Active Substance: ACYCLOVIR
     Indication: Prophylaxis
     Route: 048
  3. ACYCLOVIR [Concomitant]
     Active Substance: ACYCLOVIR
     Dosage: 800 MILLIGRAM
     Route: 048
     Dates: start: 20211102
  4. COTRIMOXAZOLE [Concomitant]
     Active Substance: SULFAMETHOXAZOLE\TRIMETHOPRIM
     Indication: Prophylaxis
     Dosage: 2 IN 1 D
     Route: 048
     Dates: start: 20211102
  5. ALLOPURINOL SODIUM [Concomitant]
     Active Substance: ALLOPURINOL SODIUM
     Indication: Prophylaxis
     Dosage: 1 IN 1 D
     Route: 048
     Dates: start: 20211102
  6. DOMPERIDONE [Concomitant]
     Active Substance: DOMPERIDONE
     Indication: Antiemetic supportive care
     Dosage: 3 IN 1 D
     Route: 048
     Dates: start: 20211102
  7. ONDANSETRON HYDROCHLORIDE [Concomitant]
     Active Substance: ONDANSETRON HYDROCHLORIDE
     Indication: Antiemetic supportive care
     Dosage: 2 IN 1 D
     Route: 048
     Dates: start: 20211102
  8. COTRIMOXAZOLE [Concomitant]
     Active Substance: SULFAMETHOXAZOLE\TRIMETHOPRIM
     Indication: Prophylaxis
     Route: 048
     Dates: start: 20211102

REACTIONS (3)
  - Myelodysplastic syndrome [Fatal]
  - Febrile neutropenia [Recovered/Resolved]
  - Atrial fibrillation [Recovered/Resolved]

NARRATIVE: CASE EVENT DATE: 20211227
